FAERS Safety Report 22084470 (Version 1)
Quarter: 2023Q1

REPORT INFORMATION
  Report Type: Report from Study
  Country: UA (occurrence: UA)
  Receive Date: 20230310
  Receipt Date: 20230310
  Transmission Date: 20230417
  Serious: Yes (Other)
  Sender: FDA-Public Use
  Company Number: UA-JNJFOC-20230260332

PATIENT

DRUGS (1)
  1. ERDAFITINIB [Suspect]
     Active Substance: ERDAFITINIB
     Indication: Product used for unknown indication
     Route: 048

REACTIONS (3)
  - Ulcerative keratitis [Unknown]
  - Brain injury [Unknown]
  - Disease progression [Unknown]
